FAERS Safety Report 17900991 (Version 2)
Quarter: 2020Q2

REPORT INFORMATION
  Report Type: Spontaneous
  Country: US (occurrence: US)
  Receive Date: 20200616
  Receipt Date: 20200619
  Transmission Date: 20200714
  Serious: Yes (Other)
  Sender: FDA-Public Use
  Company Number: US-PFIZER INC-2020233294

PATIENT
  Age: 48 Year
  Sex: Female
  Weight: 54.43 kg

DRUGS (1)
  1. EFFEXOR XR [Suspect]
     Active Substance: VENLAFAXINE HYDROCHLORIDE
     Indication: STRESS
     Dosage: 37 MG
     Dates: start: 20200610, end: 202006

REACTIONS (7)
  - Off label use [Unknown]
  - Paranoia [Recovered/Resolved]
  - Product prescribing error [Unknown]
  - Product use in unapproved indication [Unknown]
  - Hallucination [Recovered/Resolved]
  - Feeling drunk [Recovered/Resolved]
  - Dizziness [Recovered/Resolved]

NARRATIVE: CASE EVENT DATE: 20200610
